FAERS Safety Report 6401894-0 (Version None)
Quarter: 2009Q4

REPORT INFORMATION
  Report Type: 
  Country: None (occurrence: None)
  Receive Date: 20091013
  Receipt Date: 20091013
  Transmission Date: 20100525
  Serious: Yes (Other)
  Sender: FDA-Public Use
  Company Number: None

PATIENT
  Age: 59 Year
  Sex: Female
  Weight: 58.9676 kg

DRUGS (2)
  1. LYRICA [Suspect]
     Indication: MUSCULOSKELETAL DISORDER
     Dosage: 25 MG 2 PILLS 2 X'S DAY PO
     Route: 048
     Dates: start: 20090519, end: 20090801
  2. LYRICA [Suspect]
     Indication: NEURALGIA
     Dosage: 25 MG 2 PILLS 2 X'S DAY PO
     Route: 048
     Dates: start: 20090519, end: 20090801

REACTIONS (1)
  - ARRHYTHMIA [None]
